FAERS Safety Report 7224792-1 (Version None)
Quarter: 2011Q1

REPORT INFORMATION
  Report Type: 
  Country: None (occurrence: None)
  Receive Date: 20110113
  Receipt Date: 20110103
  Transmission Date: 20110831
  Serious: Yes (Hospitalization)
  Sender: FDA-Public Use
  Company Number: US-JNJCH-2011000564

PATIENT
  Age: 49 Year
  Sex: Male
  Weight: 104.3 kg

DRUGS (1)
  1. EXTRA STRENGTH ROLAIDS SOFTCHEWS WILD CHERRY [Suspect]
     Indication: FLATULENCE
     Dosage: TEXT:TWO SOFTCHEWS ONCE
     Route: 048
     Dates: start: 20101222, end: 20101222

REACTIONS (3)
  - FOOD POISONING [None]
  - OFF LABEL USE [None]
  - PRODUCT QUALITY ISSUE [None]
